FAERS Safety Report 23965134 (Version 1)
Quarter: 2024Q2

REPORT INFORMATION
  Report Type: Report from Study
  Country: CA (occurrence: None)
  Receive Date: 20240612
  Receipt Date: 20240612
  Transmission Date: 20240716
  Serious: Yes (Other)
  Sender: FDA-Public Use
  Company Number: 2024A130546

PATIENT
  Sex: Female

DRUGS (5)
  1. FASENRA [Suspect]
     Active Substance: BENRALIZUMAB
     Indication: Asthma
     Route: 058
     Dates: start: 20240514
  2. SINGULAIR [Concomitant]
     Active Substance: MONTELUKAST SODIUM
     Dosage: DIE
  3. PREDNISONE [Concomitant]
     Active Substance: PREDNISONE
     Dosage: EVERY 2 DAYS
  4. ENERZAIRE [Concomitant]
     Dosage: 1 PUFF BID
  5. VENTOLIN [Concomitant]
     Active Substance: ALBUTEROL SULFATE
     Dosage: PRN

REACTIONS (4)
  - Malaise [Unknown]
  - Asthenia [Unknown]
  - Mobility decreased [Unknown]
  - Dehydration [Unknown]
